FAERS Safety Report 15543167 (Version 1)
Quarter: 2018Q4

REPORT INFORMATION
  Report Type: Spontaneous
  Country: FR (occurrence: FR)
  Receive Date: 20181023
  Receipt Date: 20181023
  Transmission Date: 20190205
  Serious: Yes (Hospitalization)
  Sender: FDA-Public Use
  Company Number: FR-PFIZER INC-2018425531

PATIENT
  Age: 81 Year
  Sex: Male
  Weight: 74 kg

DRUGS (6)
  1. BACTRIM [Suspect]
     Active Substance: SULFAMETHOXAZOLE\TRIMETHOPRIM
     Indication: ANTIBIOTIC PROPHYLAXIS
     Dosage: 400 MG/80MG, UNK
     Route: 048
     Dates: start: 201808, end: 20180924
  2. ZYLORIC [Suspect]
     Active Substance: ALLOPURINOL
     Dosage: 1 DF, UNK
     Route: 048
     Dates: start: 20180910, end: 20180919
  3. LERCAPRESS [Suspect]
     Active Substance: ENALAPRIL MALEATE\LERCANIDIPINE HYDROCHLORIDE
     Dosage: 1 DF (20MG/20MG), UNK
     Route: 048
     Dates: start: 20180806
  4. ZELITREX [Suspect]
     Active Substance: VALACYCLOVIR HYDROCHLORIDE
     Dosage: 2 DF, UNK
     Route: 048
     Dates: start: 201808, end: 20180924
  5. LEDERFOLINE [Suspect]
     Active Substance: LEUCOVORIN CALCIUM
     Route: 048
     Dates: start: 201808, end: 20180924
  6. PYOSTACINE [Suspect]
     Active Substance: PRISTINAMYCIN
     Indication: BACTERIAL INFECTION
     Dosage: 2 DF, 1X/DAY
     Route: 048
     Dates: start: 201808, end: 20180924

REACTIONS (2)
  - Urticaria [Unknown]
  - Pruritus [Unknown]

NARRATIVE: CASE EVENT DATE: 20180919
